FAERS Safety Report 6683886-X (Version None)
Quarter: 2010Q2

REPORT INFORMATION
  Report Type: 
  Country: None (occurrence: None)
  Receive Date: 20100416
  Receipt Date: 20100405
  Transmission Date: 20101027
  Serious: Yes (Hospitalization, Other)
  Sender: FDA-Public Use
  Company Number: US-CELGENEUS-163-20785-10020174

PATIENT
  Sex: Female

DRUGS (5)
  1. THALOMID [Suspect]
     Indication: MULTIPLE MYELOMA
     Route: 048
     Dates: start: 20090101, end: 20100209
  2. THALOMID [Suspect]
     Route: 048
     Dates: start: 20080602, end: 20090101
  3. VELCADE [Suspect]
     Indication: MULTIPLE MYELOMA
     Route: 065
     Dates: start: 20080602, end: 20090722
  4. DEXAMETHASONE [Suspect]
     Indication: DRUG USE FOR UNKNOWN INDICATION
     Route: 065
  5. LOVENOX [Concomitant]
     Route: 065
     Dates: start: 20090225

REACTIONS (11)
  - ATRIAL FLUTTER [None]
  - BLOOD GLUCOSE INCREASED [None]
  - CELLULITIS [None]
  - DEEP VEIN THROMBOSIS [None]
  - DEHYDRATION [None]
  - FALL [None]
  - FATIGUE [None]
  - HAEMORRHAGIC EROSIVE GASTRITIS [None]
  - MUSCULAR WEAKNESS [None]
  - NEUROPATHY PERIPHERAL [None]
  - WEIGHT DECREASED [None]
